FAERS Safety Report 12140668 (Version 1)
Quarter: 2016Q1

REPORT INFORMATION
  Report Type: Spontaneous
  Country: US (occurrence: None)
  Receive Date: 20160302
  Receipt Date: 20160302
  Transmission Date: 20160526
  Serious: Yes (Hospitalization)
  Sender: FDA-Public Use
  Company Number: None

PATIENT
  Age: 5 Year
  Sex: Male
  Weight: 17.6 kg

DRUGS (5)
  1. DEXAMETHASONE. [Suspect]
     Active Substance: DEXAMETHASONE
     Dates: end: 20160121
  2. METHOTREXATE [Suspect]
     Active Substance: METHOTREXATE
     Dates: end: 20160115
  3. VINCRISTINE SULFATE. [Suspect]
     Active Substance: VINCRISTINE SULFATE
     Dates: end: 20160115
  4. CYTARABINE. [Suspect]
     Active Substance: CYTARABINE
     Dates: end: 20160108
  5. ONCASPAR [Suspect]
     Active Substance: PEGASPARGASE
     Dates: end: 20160111

REACTIONS (16)
  - Abdominal pain [None]
  - Intussusception [None]
  - Abdominal distension [None]
  - Pleural effusion [None]
  - Hyponatraemia [None]
  - Septic shock [None]
  - Heart rate decreased [None]
  - Pseudomonas test positive [None]
  - Small intestinal obstruction [None]
  - Gastrointestinal fistula [None]
  - Erythema [None]
  - Lethargy [None]
  - Flatulence [None]
  - Metabolic acidosis [None]
  - Ileus [None]
  - Clostridium test positive [None]

NARRATIVE: CASE EVENT DATE: 20160121
